FAERS Safety Report 5055999-X (Version None)
Quarter: 2006Q3

REPORT INFORMATION
  Report Type: 
  Country: None (occurrence: None)
  Receive Date: 20060720
  Receipt Date: 20060710
  Transmission Date: 20061208
  Serious: Yes (Hospitalization)
  Sender: FDA-Public Use
  Company Number: FR-BRISTOL-MYERS SQUIBB COMPANY-13438619

PATIENT
  Age: 45 Year
  Sex: Male

DRUGS (5)
  1. DIDANOSINE [Suspect]
     Indication: HIV INFECTION
     Route: 048
     Dates: start: 20060306
  2. NORVIR [Suspect]
     Route: 048
     Dates: start: 20010611
  3. VIREAD [Suspect]
     Route: 048
     Dates: start: 20050203
  4. FUZEON [Suspect]
     Route: 058
     Dates: start: 20060306
  5. TMC114 [Suspect]
     Route: 048
     Dates: start: 20060306

REACTIONS (3)
  - ABDOMINAL PAIN [None]
  - CONSTIPATION [None]
  - LYMPHOMA [None]
